FAERS Safety Report 22043949 (Version 1)
Quarter: 2023Q1

REPORT INFORMATION
  Report Type: Spontaneous
  Country: JP (occurrence: JP)
  Receive Date: 20230228
  Receipt Date: 20230228
  Transmission Date: 20230417
  Serious: Yes (Other)
  Sender: FDA-Public Use
  Company Number: JP-BRISTOL-MYERS SQUIBB COMPANY-2023-025236

PATIENT
  Age: 72 Year
  Sex: Female

DRUGS (2)
  1. DACLATASVIR DIHYDROCHLORIDE [Suspect]
     Active Substance: DACLATASVIR DIHYDROCHLORIDE
     Indication: Chronic hepatitis C
  2. ASUNAPREVIR [Suspect]
     Active Substance: ASUNAPREVIR
     Indication: Chronic hepatitis C

REACTIONS (1)
  - Glomerulonephritis membranoproliferative [Unknown]
